FAERS Safety Report 13987511 (Version 3)
Quarter: 2017Q4

REPORT INFORMATION
  Report Type: Spontaneous
  Country: IT (occurrence: IT)
  Receive Date: 20170919
  Receipt Date: 20171030
  Transmission Date: 20180321
  Serious: Yes (Other)
  Sender: FDA-Public Use
  Company Number: IT-FERRINGPH-2017FE04507

PATIENT

DRUGS (1)
  1. MEROPUR [Suspect]
     Active Substance: MENOTROPINS
     Indication: OVULATION INDUCTION
     Dosage: 75 IU, DAILY
     Route: 058
     Dates: start: 20170705, end: 20170714

REACTIONS (1)
  - Dermatitis bullous [Recovered/Resolved]

NARRATIVE: CASE EVENT DATE: 20170714
